FAERS Safety Report 26155581 (Version 1)
Quarter: 2025Q4

REPORT INFORMATION
  Report Type: Spontaneous
  Country: EU (occurrence: EU)
  Receive Date: 20251215
  Receipt Date: 20251215
  Transmission Date: 20260118
  Serious: Yes (Other)
  Sender: ALKEM
  Company Number: None

PATIENT
  Sex: Female

DRUGS (3)
  1. TACROLIMUS [Suspect]
     Active Substance: TACROLIMUS
     Indication: Immune-mediated hepatitis
     Dosage: UNK
     Route: 065
     Dates: start: 20250523, end: 20250825
  2. TACROLIMUS [Suspect]
     Active Substance: TACROLIMUS
     Dosage: UNK (REDUCED IN ACCORDANCE WITH TACROLIMUS LEVELS AND RENAL FUNCTION)
     Route: 065
     Dates: start: 20250825
  3. TACROLIMUS [Suspect]
     Active Substance: TACROLIMUS
     Dosage: 0.5 MILLIGRAM, ONCE WEEKLY (DOSE REDUCED)
     Route: 065

REACTIONS (3)
  - Acute kidney injury [Recovering/Resolving]
  - Toxicity to various agents [Unknown]
  - Stomatitis [Unknown]
